FAERS Safety Report 7983640-2 (Version None)
Quarter: 2011Q4

REPORT INFORMATION
  Report Type: 
  Country: None (occurrence: None)
  Receive Date: 20111215
  Receipt Date: 20111206
  Transmission Date: 20120403
  Serious: Yes (Hospitalization)
  Sender: FDA-Public Use
  Company Number: US-ASTRAZENECA-2010SE52264

PATIENT
  Age: 80 Year
  Sex: Male

DRUGS (1)
  1. CRESTOR [Suspect]
     Route: 048

REACTIONS (3)
  - CARDIAC DISORDER [None]
  - DRUG INTOLERANCE [None]
  - GASTROOESOPHAGEAL REFLUX DISEASE [None]
